FAERS Safety Report 6813905-9 (Version None)
Quarter: 2010Q3

REPORT INFORMATION
  Report Type: 
  Country: None (occurrence: None)
  Receive Date: 20100702
  Receipt Date: 20100624
  Transmission Date: 20110219
  Serious: Yes (Other)
  Sender: FDA-Public Use
  Company Number: JP-MERCK-1005USA03081

PATIENT
  Age: 64 Year
  Sex: Female
  Weight: 59 kg

DRUGS (3)
  1. JANUVIA [Suspect]
     Indication: TYPE 2 DIABETES MELLITUS
     Route: 048
     Dates: start: 20100204
  2. DIOVAN [Concomitant]
     Indication: HYPERTENSION
     Route: 048
     Dates: start: 20100204
  3. ADALAT CC [Concomitant]
     Indication: HYPERTENSION
     Route: 048
     Dates: start: 20091216

REACTIONS (1)
  - RHEUMATOID ARTHRITIS [None]
